FAERS Safety Report 7031109-4 (Version None)
Quarter: 2010Q4

REPORT INFORMATION
  Report Type: 
  Country: None (occurrence: None)
  Receive Date: 20101001
  Receipt Date: 20100916
  Transmission Date: 20110411
  Serious: Yes (Other)
  Sender: FDA-Public Use
  Company Number: 010714

PATIENT
  Age: 9 Year
  Sex: Female

DRUGS (14)
  1. BUSULFEX [Suspect]
     Indication: STEM CELL TRANSPLANT
     Dosage: 0.8 MG/KG, INTRAVENOUS
     Route: 042
     Dates: start: 20090223, end: 20090226
  2. CYCLOPHOSPHAMIDE [Concomitant]
  3. THIOTEPA [Concomitant]
  4. THYMOGLOBULIN [Concomitant]
  5. AZATHIOPRINE [Concomitant]
  6. HYDROXYUREA [Concomitant]
  7. FLUDARABINE PHOSPHATE [Concomitant]
  8. CYCLOSPORINE [Concomitant]
  9. METHYLPREDNISOLONE [Concomitant]
  10. METHOTREXATE [Concomitant]
  11. VALPROIC ACID [Concomitant]
  12. GRANISETRON (GRANISETRON) [Concomitant]
  13. ANTIBIOTICS [Concomitant]
  14. AMPHOTERICIN B [Concomitant]

REACTIONS (2)
  - GASTROINTESTINAL INFLAMMATION [None]
  - MUCOSAL INFLAMMATION [None]
